FAERS Safety Report 14685680 (Version 3)
Quarter: 2019Q3

REPORT INFORMATION
  Report Type: Report from Study
  Country: US (occurrence: US)
  Receive Date: 20180327
  Receipt Date: 20190716
  Transmission Date: 20191004
  Serious: Yes (Hospitalization, Other)
  Sender: FDA-Public Use
  Company Number: US-JNJFOC-20171124103

PATIENT
  Age: 86 Year
  Sex: Male

DRUGS (23)
  1. IMBRUVICA [Suspect]
     Active Substance: IBRUTINIB
     Route: 048
     Dates: start: 20171110, end: 201712
  2. LIDODERM [Concomitant]
     Active Substance: LIDOCAINE
  3. TYLENOL [Concomitant]
     Active Substance: ACETAMINOPHEN
     Indication: ARTHRITIS
  4. CYANOCOBALAMIN. [Concomitant]
     Active Substance: CYANOCOBALAMIN
     Route: 065
  5. ONDANSETRON [Concomitant]
     Active Substance: ONDANSETRON
  6. IMBRUVICA [Suspect]
     Active Substance: IBRUTINIB
     Indication: WALDENSTROM^S MACROGLOBULINAEMIA
     Route: 048
     Dates: start: 20171108, end: 2017
  7. PIOGLITAZONE HCL [Concomitant]
     Active Substance: PIOGLITAZONE
  8. VITAMIN C [Concomitant]
     Active Substance: ASCORBIC ACID
  9. MELATONIN [Concomitant]
     Active Substance: MELATONIN
  10. ONGLYZA [Concomitant]
     Active Substance: SAXAGLIPTIN HYDROCHLORIDE
  11. PANTOPRAZOLE SODIUM. [Concomitant]
     Active Substance: PANTOPRAZOLE SODIUM
  12. GLUCOSAMINE [Concomitant]
     Active Substance: GLUCOSAMINE
  13. VITAMIN D3 [Concomitant]
     Active Substance: CHOLECALCIFEROL
  14. PROCHLORPERAZINE MALEATE. [Concomitant]
     Active Substance: PROCHLORPERAZINE MALEATE
  15. METOPROLOL SUCCINATE. [Concomitant]
     Active Substance: METOPROLOL SUCCINATE
  16. IRON [Concomitant]
     Active Substance: IRON
  17. IMBRUVICA [Suspect]
     Active Substance: IBRUTINIB
     Route: 048
     Dates: start: 20171109
  18. ALLOPURINOL. [Concomitant]
     Active Substance: ALLOPURINOL
  19. VOLTAREN [Concomitant]
     Active Substance: DICLOFENAC SODIUM
  20. FLOMAX [Concomitant]
     Active Substance: TAMSULOSIN HYDROCHLORIDE
  21. MULTIVITAMINS [Concomitant]
     Active Substance: VITAMINS
  22. PEPCID [Concomitant]
     Active Substance: FAMOTIDINE
  23. IMBRUVICA [Suspect]
     Active Substance: IBRUTINIB
     Route: 048
     Dates: start: 20180227

REACTIONS (15)
  - Upper limb fracture [Not Recovered/Not Resolved]
  - Fatigue [Unknown]
  - Off label use [Unknown]
  - Fall [Not Recovered/Not Resolved]
  - Incorrect dose administered [Unknown]
  - Decreased appetite [Unknown]
  - Lethargy [Unknown]
  - Constipation [Unknown]
  - Asthenia [Unknown]
  - Pelvic fracture [Not Recovered/Not Resolved]
  - Haematemesis [Unknown]
  - Pneumonia [Unknown]
  - Drug ineffective [Unknown]
  - Bowel movement irregularity [Unknown]
  - Blood count abnormal [Unknown]

NARRATIVE: CASE EVENT DATE: 201711
